FAERS Safety Report 4807635-2 (Version None)
Quarter: 2005Q4

REPORT INFORMATION
  Report Type: 
  Country: None (occurrence: None)
  Receive Date: 20051024
  Receipt Date: 20050801
  Transmission Date: 20060501
  Serious: Yes (Death, Hospitalization)
  Sender: FDA-Public Use
  Company Number: 2005AC01150

PATIENT
  Age: 27466 Day
  Sex: Male

DRUGS (10)
  1. CRESTOR [Suspect]
     Route: 048
     Dates: start: 20050331, end: 20050710
  2. CRESTOR [Suspect]
     Route: 048
     Dates: start: 20050713, end: 20050715
  3. SELOKEEN ZOC [Suspect]
     Route: 048
     Dates: start: 20050331, end: 20050725
  4. HYDROCHLOROTHIAZIDUM [Suspect]
     Route: 048
     Dates: start: 20050331, end: 20050710
  5. HYDROCHLOROTHIAZIDUM [Suspect]
     Route: 048
     Dates: start: 20050713, end: 20050725
  6. ASCAL [Suspect]
     Route: 048
     Dates: start: 20050331, end: 20050725
  7. COVERSYL [Suspect]
     Route: 048
     Dates: start: 20050331
  8. PANTOZOL [Suspect]
     Route: 048
     Dates: start: 20050331, end: 20050725
  9. PLAVIX [Suspect]
     Route: 048
     Dates: start: 20050331, end: 20050725
  10. PREDNISONE TAB [Concomitant]
     Dates: start: 20050727

REACTIONS (8)
  - BILE DUCT STONE [None]
  - CHOLESTASIS [None]
  - DEPRESSED LEVEL OF CONSCIOUSNESS [None]
  - HEPATIC FAILURE [None]
  - HEPATITIS TOXIC [None]
  - PANCREATIC NECROSIS [None]
  - PANCREATITIS [None]
  - VENTRICULAR HYPERTROPHY [None]
